FAERS Safety Report 4370416-0 (Version None)
Quarter: 2004Q2

REPORT INFORMATION
  Report Type: 
  Country: None (occurrence: None)
  Receive Date: 20040603
  Receipt Date: 20040205
  Transmission Date: 20050107
  Serious: Yes (Other)
  Sender: FDA-Public Use
  Company Number: US-BRISTOL-MYERS SQUIBB COMPANY-12497715

PATIENT
  Age: 50 Year
  Sex: Female
  Weight: 75 kg

DRUGS (15)
  1. ABILIFY [Suspect]
     Indication: ABNORMAL BEHAVIOUR
     Dosage: INITIAL DOSE 15 MG/DAY FROM 03-SEP-2003 TO 01-OCT-2003.
     Route: 048
     Dates: start: 20030903, end: 20031111
  2. DILANTIN [Concomitant]
     Dosage: QHS; TAKEN FOR MANY YEARS
  3. CALCIUM CARBONATE [Concomitant]
  4. ORTHO [Concomitant]
     Dosage: 3 WEEKS PER MONTH
     Route: 062
  5. SEROQUEL [Concomitant]
     Dosage: 300 MG/MORNING, 800 MG/EVENING
  6. RISPERDAL [Concomitant]
     Dates: end: 20031001
  7. COGENTIN [Concomitant]
     Dates: start: 20031001
  8. PEPCID [Concomitant]
     Dosage: QHS
  9. ACIPHEX [Concomitant]
     Dates: start: 20031105
  10. NASACORT [Concomitant]
     Dosage: 2 SPRAYS QHS
     Route: 045
  11. LOTRIMIN CREAM [Concomitant]
     Dosage: TO TOES QOD
  12. MULTI-VITAMIN [Concomitant]
  13. SUDAFED S.A. [Concomitant]
  14. MOBIC [Concomitant]
  15. BENZTROPINE MESYLATE [Concomitant]

REACTIONS (1)
  - PANCREATITIS ACUTE [None]
